FAERS Safety Report 12240163 (Version 2)
Quarter: 2016Q2

REPORT INFORMATION
  Report Type: Spontaneous
  Country: US (occurrence: US)
  Receive Date: 20160405
  Receipt Date: 20160408
  Transmission Date: 20160815
  Serious: Yes (Other)
  Sender: FDA-Public Use
  Company Number: US-PFIZER INC-2016188989

PATIENT
  Age: 61 Year
  Sex: Female
  Weight: 74.84 kg

DRUGS (12)
  1. XELJANZ [Suspect]
     Active Substance: TOFACITINIB CITRATE
     Indication: RHEUMATOID ARTHRITIS
     Dosage: ONE 5MG TABLET THE MORNING AND AT NIGHT
     Dates: start: 2015
  2. FISH OIL OMEGA 3 [Concomitant]
     Indication: BLOOD CHOLESTEROL ABNORMAL
     Dosage: 1200 MG; 360 OF OMEGA 3
  3. SPIRIVA [Concomitant]
     Active Substance: TIOTROPIUM BROMIDE MONOHYDRATE
     Indication: CHRONIC OBSTRUCTIVE PULMONARY DISEASE
     Dosage: 8MCG, INHALER ONCE A DAY
  4. LORATADINE. [Concomitant]
     Active Substance: LORATADINE
     Indication: HYPERSENSITIVITY
     Dosage: 10 MG, 1X/DAY
  5. PROAIR HFA [Concomitant]
     Active Substance: ALBUTEROL SULFATE
     Indication: ASTHMA
  6. OMEPRAZOLE. [Concomitant]
     Active Substance: OMEPRAZOLE
     Indication: GASTROOESOPHAGEAL REFLUX DISEASE
     Dosage: 20MG TABLET TWICE A DAY
  7. BUDESONIDE. [Concomitant]
     Active Substance: BUDESONIDE
     Indication: CHRONIC OBSTRUCTIVE PULMONARY DISEASE
     Dosage: 2MG TWICE A DAY IN NEBULIZER
  8. FLUOXETINE [Concomitant]
     Active Substance: FLUOXETINE HYDROCHLORIDE
     Indication: MOOD SWINGS
     Dosage: 40 MG, 1X/DAY
  9. GARLIC. [Concomitant]
     Active Substance: GARLIC
     Indication: BLOOD CHOLESTEROL ABNORMAL
     Dosage: 1000 MG, 1X/DAY
  10. PROBIOTIC [Concomitant]
     Active Substance: PROBIOTICS NOS
     Indication: ANTIBIOTIC THERAPY
     Dosage: TWO A DAY
  11. PROAIR HFA [Concomitant]
     Active Substance: ALBUTEROL SULFATE
     Indication: CHRONIC OBSTRUCTIVE PULMONARY DISEASE
     Dosage: INHALER FOUR TIMES A DAY
  12. BROVANA [Concomitant]
     Active Substance: ARFORMOTEROL TARTRATE
     Indication: ASTHMA
     Dosage: 50MG TWICE A DAY ONCE; IN MORNING AND NIGHT IN NEBULIZER

REACTIONS (2)
  - Anaemia [Not Recovered/Not Resolved]
  - Vitamin B12 deficiency [Not Recovered/Not Resolved]

NARRATIVE: CASE EVENT DATE: 201603
